APPROVED DRUG PRODUCT: RID MOUSSE
Active Ingredient: PIPERONYL BUTOXIDE; PYRETHRINS
Strength: 4%;EQ 0.33% BASE
Dosage Form/Route: AEROSOL;TOPICAL
Application: N021043 | Product #001
Applicant: BAYER HEALTHCARE LLC
Approved: Mar 7, 2000 | RLD: No | RS: No | Type: DISCN